FAERS Safety Report 17797737 (Version 1)
Quarter: 2020Q2

REPORT INFORMATION
  Report Type: Spontaneous
  Country: US (occurrence: US)
  Receive Date: 20200515
  Receipt Date: 20200515
  Transmission Date: 20200714
  Serious: Yes (Other)
  Sender: FDA-Public Use
  Company Number: None

PATIENT
  Age: 86 Year
  Sex: Female
  Weight: 52.3 kg

DRUGS (1)
  1. EVEROLIMUS 10MG [Suspect]
     Active Substance: EVEROLIMUS
     Indication: HORMONE RECEPTOR POSITIVE BREAST CANCER
     Route: 048
     Dates: start: 201905, end: 201909

REACTIONS (2)
  - Generalised oedema [None]
  - Oedema peripheral [None]

NARRATIVE: CASE EVENT DATE: 201909
